FAERS Safety Report 25062955 (Version 1)
Quarter: 2025Q1

REPORT INFORMATION
  Report Type: Spontaneous
  Country: FR (occurrence: FR)
  Receive Date: 20250311
  Receipt Date: 20250311
  Transmission Date: 20250409
  Serious: Yes (Hospitalization)
  Sender: RANBAXY
  Company Number: FR-AFSSAPS-TO2024002329

PATIENT
  Age: 83 Year
  Sex: Male

DRUGS (2)
  1. CIPROFLOXACIN [Suspect]
     Active Substance: CIPROFLOXACIN
     Indication: Diverticulum intestinal
     Dosage: 1 DOSAGE FORM, DAILY
     Route: 048
     Dates: start: 20240401, end: 20240504
  2. FLAGYL [Suspect]
     Active Substance: METRONIDAZOLE\METRONIDAZOLE HYDROCHLORIDE
     Indication: Diverticulum intestinal
     Dosage: 1 DOSAGE FORM, DAILY
     Route: 048
     Dates: start: 20240401, end: 20240512

REACTIONS (3)
  - Acute kidney injury [Recovering/Resolving]
  - Hypersensitivity [Recovering/Resolving]
  - Hepatic cytolysis [Recovering/Resolving]

NARRATIVE: CASE EVENT DATE: 20240504
